FAERS Safety Report 12395007 (Version 1)
Quarter: 2016Q2

REPORT INFORMATION
  Report Type: Other
  Country: GB (occurrence: GB)
  Receive Date: 20160523
  Receipt Date: 20160523
  Transmission Date: 20160815
  Serious: Yes (Other)
  Sender: FDA-Public Use
  Company Number: GB-MYLANLABS-2016M1020264

PATIENT

DRUGS (1)
  1. VENLAFAXINE [Suspect]
     Active Substance: VENLAFAXINE HYDROCHLORIDE
     Dosage: UNK

REACTIONS (9)
  - Fatigue [Unknown]
  - Nervousness [Unknown]
  - Incorrect dose administered [Unknown]
  - Depersonalisation/derealisation disorder [Unknown]
  - Anxiety [Unknown]
  - Depression [Unknown]
  - Wrong technique in product usage process [Unknown]
  - Agitation [Unknown]
  - Drug withdrawal syndrome [Unknown]
